FAERS Safety Report 14640233 (Version 1)
Quarter: 2018Q1

REPORT INFORMATION
  Report Type: Report from Study
  Country: ES (occurrence: ES)
  Receive Date: 20180315
  Receipt Date: 20180315
  Transmission Date: 20180509
  Serious: Yes (Death)
  Sender: FDA-Public Use
  Company Number: ES-ELI_LILLY_AND_COMPANY-ES201803005211

PATIENT
  Age: 79 Year
  Sex: Female

DRUGS (2)
  1. TERIPARATIDE [Suspect]
     Active Substance: TERIPARATIDE
     Indication: FEMUR FRACTURE
     Dosage: 20 UG, DAILY
     Route: 058
     Dates: start: 20180215
  2. PARACETAMOL [Concomitant]
     Active Substance: ACETAMINOPHEN
     Indication: PAIN

REACTIONS (2)
  - Off label use [Unknown]
  - Blood pressure decreased [Fatal]

NARRATIVE: CASE EVENT DATE: 20180215
